FAERS Safety Report 8835317 (Version 3)
Quarter: 2015Q3

REPORT INFORMATION
  Report Type: Report from Study
  Country: US (occurrence: US)
  Receive Date: 20121011
  Receipt Date: 20150810
  Transmission Date: 20151125
  Serious: Yes (Death)
  Sender: FDA-Public Use
  Company Number: US-ROCHE-1110966

PATIENT
  Sex: Female

DRUGS (19)
  1. NUTROPIN AQ [Suspect]
     Active Substance: SOMATROPIN
     Indication: CHRONIC KIDNEY DISEASE
     Route: 058
  2. LANSOPRAZOLE. [Concomitant]
     Active Substance: LANSOPRAZOLE
     Route: 065
  3. FLUCONAZOLE. [Concomitant]
     Active Substance: FLUCONAZOLE
     Route: 065
  4. FLUTICASONE [Concomitant]
     Active Substance: FLUTICASONE\FLUTICASONE PROPIONATE
     Dosage: PER PUFF 1 PUFF TWICE DAILY
     Route: 065
  5. NUTROPIN AQ [Suspect]
     Active Substance: SOMATROPIN
     Route: 058
  6. CALCITRIOL. [Concomitant]
     Active Substance: CALCITRIOL
     Route: 065
  7. CALCITRIOL. [Concomitant]
     Active Substance: CALCITRIOL
     Route: 065
  8. CLONIDINE. [Concomitant]
     Active Substance: CLONIDINE
     Route: 065
  9. NEPHRONEX [Concomitant]
     Route: 065
  10. LEVOTHYROXINE. [Concomitant]
     Active Substance: LEVOTHYROXINE
     Route: 065
  11. FERROUS SULFATE [Concomitant]
     Active Substance: FERROUS SULFATE\FERROUS SULFATE, DRIED
     Route: 065
  12. CALCITRIOL. [Concomitant]
     Active Substance: CALCITRIOL
     Route: 065
  13. FLUCONAZOLE. [Concomitant]
     Active Substance: FLUCONAZOLE
     Route: 065
  14. LANSOPRAZOLE. [Concomitant]
     Active Substance: LANSOPRAZOLE
     Route: 065
  15. LANSOPRAZOLE. [Concomitant]
     Active Substance: LANSOPRAZOLE
     Route: 065
  16. CLONIDINE. [Concomitant]
     Active Substance: CLONIDINE
     Route: 065
  17. FERROUS SULFATE [Concomitant]
     Active Substance: FERROUS SULFATE\FERROUS SULFATE, DRIED
     Route: 065
  18. FLUCONAZOLE. [Concomitant]
     Active Substance: FLUCONAZOLE
     Route: 065
  19. BENEPROTEIN [Concomitant]
     Dosage: 2 TABLESPOONS
     Route: 065

REACTIONS (7)
  - Vomiting [Unknown]
  - Dry skin [Unknown]
  - Palpitations [Unknown]
  - Hair texture abnormal [Unknown]
  - Rash [Unknown]
  - Cardio-respiratory arrest [Fatal]
  - Hepatic cyst [Unknown]
